FAERS Safety Report 16920014 (Version 1)
Quarter: 2019Q4

REPORT INFORMATION
  Report Type: Spontaneous
  Country: NL (occurrence: NL)
  Receive Date: 20191015
  Receipt Date: 20191015
  Transmission Date: 20200122
  Serious: Yes (Other)
  Sender: FDA-Public Use
  Company Number: NL-AMNEAL PHARMACEUTICALS-2019-AMRX-02198

PATIENT
  Age: 67 Year
  Sex: Male

DRUGS (2)
  1. DILTIAZEM. [Suspect]
     Active Substance: DILTIAZEM
     Indication: ATRIAL FIBRILLATION
     Dosage: UNK
     Route: 065
  2. NADOLOL. [Suspect]
     Active Substance: NADOLOL
     Indication: VARICES OESOPHAGEAL
     Dosage: UNK
     Route: 065

REACTIONS (5)
  - Renal failure [Unknown]
  - Off label use [Unknown]
  - Shock [Recovering/Resolving]
  - Hyperkalaemia [Unknown]
  - Bradycardia [Recovering/Resolving]
